FAERS Safety Report 8622569-3 (Version None)
Quarter: 2012Q3

REPORT INFORMATION
  Report Type: 
  Country: None (occurrence: None)
  Receive Date: 20120809
  Receipt Date: 20120801
  Transmission Date: 20120928
  Serious: Yes (Other)
  Sender: FDA-Public Use
  Company Number: 2012HGS-003845

PATIENT
  Age: 48 Year
  Sex: Female
  Weight: 113.3993 kg

DRUGS (17)
  1. BENLYSTA [Suspect]
     Indication: SYSTEMIC LUPUS ERYTHEMATOSUS
     Dosage: 1 IN 28 D, INTRAVENOUS DRIP
     Route: 041
     Dates: start: 20110801
  2. BENLYSTA [Suspect]
     Indication: SYSTEMIC LUPUS ERYTHEMATOSUS
     Dosage: 1 IN 28 D, INTRAVENOUS DRIP
     Route: 041
     Dates: start: 20120718
  3. TOPAMAX [Concomitant]
  4. RESTASIS [Concomitant]
  5. POTASSIUM [Concomitant]
  6. FENTANYL [Concomitant]
  7. FORTEO [Concomitant]
  8. AMITRIPTYLINE HYDROCHLORIDE [Concomitant]
  9. PREDNISONE [Concomitant]
  10. FLEXERIL [Concomitant]
  11. CARDIZEM [Concomitant]
  12. VOLTAREN [Concomitant]
  13. LASIX [Concomitant]
  14. PROTONIX [Concomitant]
  15. TRAMADOL HCL [Concomitant]
  16. PLAQUENIL [Concomitant]
  17. NORCO (VICODIN) (PARACETAMOL, HYDROCODONE BITARTRATE) [Concomitant]

REACTIONS (1)
  - LATENT TUBERCULOSIS [None]
